FAERS Safety Report 13674097 (Version 2)
Quarter: 2017Q3

REPORT INFORMATION
  Report Type: Spontaneous
  Country: FR (occurrence: FR)
  Receive Date: 20170621
  Receipt Date: 20170822
  Transmission Date: 20171127
  Serious: Yes (Life-Threatening, Hospitalization, Other)
  Sender: FDA-Public Use
  Company Number: FR-BAYER-2017-114071

PATIENT
  Age: 27 Year
  Sex: Female
  Weight: 68 kg

DRUGS (1)
  1. JAYDESS [Suspect]
     Active Substance: LEVONORGESTREL
     Indication: CONTRACEPTION
     Dosage: 14 MCG/24HR, CONT
     Route: 015
     Dates: start: 20161123, end: 20170520

REACTIONS (10)
  - Ectopic pregnancy with contraceptive device [Recovering/Resolving]
  - Pelvic fluid collection [Recovering/Resolving]
  - Post procedural haemorrhage [Recovering/Resolving]
  - Hypotension [Recovering/Resolving]
  - Uterine mass [Recovering/Resolving]
  - Shock haemorrhagic [Recovering/Resolving]
  - Amenorrhoea [Recovering/Resolving]
  - Tachycardia [Recovering/Resolving]
  - Drug ineffective [None]
  - Pelvic pain [Recovering/Resolving]

NARRATIVE: CASE EVENT DATE: 201705
